FAERS Safety Report 5863395-8 (Version None)
Quarter: 2008Q3

REPORT INFORMATION
  Report Type: 
  Country: None (occurrence: None)
  Receive Date: 20080828
  Receipt Date: 20080821
  Transmission Date: 20090109
  Serious: Yes (Other)
  Sender: FDA-Public Use
  Company Number: PHHY2008PH18608

PATIENT
  Sex: Female

DRUGS (2)
  1. ZOMETA [Suspect]
     Indication: METASTASES TO BONE
     Dosage: UNK
     Dates: end: 20080701
  2. FEMARA [Concomitant]
     Dosage: UNK
     Dates: start: 20040201, end: 20080701

REACTIONS (1)
  - OSTEONECROSIS [None]
